FAERS Safety Report 6214633-3 (Version None)
Quarter: 2009Q2

REPORT INFORMATION
  Report Type: 
  Country: None (occurrence: None)
  Receive Date: 20090602
  Receipt Date: 20090519
  Transmission Date: 20091009
  Serious: Yes (Death, Hospitalization)
  Sender: FDA-Public Use
  Company Number: 2009-01873

PATIENT
  Age: 51 Year
  Sex: Male
  Weight: 52 kg

DRUGS (10)
  1. VELCADE [Suspect]
     Indication: MULTIPLE MYELOMA
     Dosage: 1 MG/M2, IV BOLUS
     Route: 040
     Dates: start: 20090420, end: 20090430
  2. CYCLOPHOSPHAMIDE [Suspect]
     Indication: MULTIPLE MYELOMA
     Dosage: 50 MG/M2, INTRAVENOUS
     Route: 042
     Dates: start: 20090420, end: 20090420
  3. CYCLOPHOSPHAMIDE [Suspect]
     Indication: MULTIPLE MYELOMA
     Dosage: 50 MG/M2, INTRAVENOUS
     Route: 042
     Dates: start: 20090327
  4. DEXAMETHASONE [Suspect]
     Indication: MULTIPLE MYELOMA
     Dosage: 40 MG, INTRAVENOUS
     Route: 042
     Dates: start: 20090420, end: 20090423
  5. DEXAMETHASONE [Suspect]
     Indication: MULTIPLE MYELOMA
     Dosage: 40 MG, INTRAVENOUS
     Route: 042
     Dates: start: 20090327
  6. THALIDOMIDE [Concomitant]
  7. LASIX [Concomitant]
  8. MESALAMINE [Concomitant]
  9. VASTAREL F (TRIMETAZIDINE HYDROCHLORIDE) [Concomitant]
  10. ASPIRIN [Concomitant]

REACTIONS (8)
  - CARDIAC AMYLOIDOSIS [None]
  - CARDIAC FAILURE CONGESTIVE [None]
  - CARDIOGENIC SHOCK [None]
  - INFLAMMATORY BOWEL DISEASE [None]
  - MYOCARDIAL FIBROSIS [None]
  - PERICARDIAL EFFUSION [None]
  - RECTAL HAEMORRHAGE [None]
  - REFUSAL OF TREATMENT BY PATIENT [None]
